FAERS Safety Report 7386088-7 (Version None)
Quarter: 2011Q1

REPORT INFORMATION
  Report Type: 
  Country: None (occurrence: None)
  Receive Date: 20110329
  Receipt Date: 20110329
  Transmission Date: 20110831
  Serious: Yes (Other)
  Sender: FDA-Public Use
  Company Number: None

PATIENT
  Sex: Female
  Weight: 24 kg

DRUGS (1)
  1. DEXTROAMPHETAMINE [Suspect]
     Indication: ATTENTION DEFICIT/HYPERACTIVITY DISORDER
     Dosage: 20MG QD PO MID FEB - MID MARCH
     Route: 048

REACTIONS (3)
  - PRODUCT QUALITY ISSUE [None]
  - ABNORMAL BEHAVIOUR [None]
  - LOOSE TOOTH [None]
